FAERS Safety Report 25159095 (Version 2)
Quarter: 2025Q2

REPORT INFORMATION
  Report Type: Spontaneous
  Country: NL (occurrence: NL)
  Receive Date: 20250404
  Receipt Date: 20250423
  Transmission Date: 20250717
  Serious: Yes (Other)
  Sender: VELOXIS PHARMACEUTICALS
  Company Number: NL-ASTELLAS-2025-AER-010169

PATIENT
  Age: 3 Year
  Sex: Female

DRUGS (7)
  1. TACROLIMUS [Suspect]
     Active Substance: TACROLIMUS
     Indication: Heart transplant
     Route: 065
  2. MYCOPHENOLATE MOFETIL [Suspect]
     Active Substance: MYCOPHENOLATE MOFETIL
     Indication: Heart transplant
     Route: 065
  3. METHYLPREDNISOLONE [Suspect]
     Active Substance: METHYLPREDNISOLONE
     Indication: Allergy prophylaxis
     Route: 065
  4. CLEMASTINE [Suspect]
     Active Substance: CLEMASTINE
     Indication: Allergy prophylaxis
     Route: 065
  5. RITUXIMAB [Suspect]
     Active Substance: RITUXIMAB
     Indication: Evans syndrome
  6. ACETAMINOPHEN [Suspect]
     Active Substance: ACETAMINOPHEN
     Indication: Allergy prophylaxis
     Route: 065
  7. PREDNISONE [Suspect]
     Active Substance: PREDNISONE
     Indication: Evans syndrome
     Route: 065

REACTIONS (11)
  - Eczema [Unknown]
  - Asthma [Unknown]
  - Respiratory tract infection [Unknown]
  - Erythema [Recovered/Resolved]
  - Stridor [Recovered/Resolved]
  - Tachypnoea [Unknown]
  - Drug ineffective [Unknown]
  - Dyspnoea [Recovered/Resolved]
  - Drug hypersensitivity [Recovered/Resolved]
  - Nausea [Recovered/Resolved]
  - Product use issue [Unknown]
